FAERS Safety Report 11102615 (Version 3)
Quarter: 2015Q3

REPORT INFORMATION
  Report Type: Report from Study
  Country: US (occurrence: US)
  Receive Date: 20150511
  Receipt Date: 20150717
  Transmission Date: 20151125
  Serious: Yes (Death, Hospitalization, Other)
  Sender: FDA-Public Use
  Company Number: US-SA-2015SA059369

PATIENT
  Age: 58 Year
  Sex: Male

DRUGS (1)
  1. FABRAZYME [Suspect]
     Active Substance: AGALSIDASE BETA
     Indication: FABRY^S DISEASE
     Dosage: Q2
     Route: 041
     Dates: start: 20030917, end: 201503

REACTIONS (12)
  - Wound infection [Recovering/Resolving]
  - Lower limb fracture [Recovering/Resolving]
  - Death [Fatal]
  - Syncope [Recovering/Resolving]
  - Haematoma [Recovering/Resolving]
  - Weight bearing difficulty [Recovering/Resolving]
  - Joint injury [Recovering/Resolving]
  - Decubitus ulcer [Recovering/Resolving]
  - Cellulitis [Recovering/Resolving]
  - Cerebral haemorrhage [Not Recovered/Not Resolved]
  - Fall [Unknown]
  - Wheelchair user [Recovering/Resolving]

NARRATIVE: CASE EVENT DATE: 201412
